FAERS Safety Report 16880208 (Version 2)
Quarter: 2021Q1

REPORT INFORMATION
  Report Type: Spontaneous
  Country: CA (occurrence: CA)
  Receive Date: 20191003
  Receipt Date: 20210317
  Transmission Date: 20210419
  Serious: Yes (Other)
  Sender: FDA-Public Use
  Company Number: CA-AUROBINDO-AUR-APL-2019-063152

PATIENT
  Age: 44 Year
  Sex: Male
  Weight: 60 kg

DRUGS (7)
  1. CIPROFLOXACIN. [Suspect]
     Active Substance: CIPROFLOXACIN
     Indication: PROSTATITIS
     Dosage: 500 MILLIGRAM, TWO TIMES A DAY
     Route: 048
  2. DASATINIB. [Concomitant]
     Active Substance: DASATINIB
     Dosage: 50 MILLIGRAM, ONCE A DAY
     Route: 065
  3. DASATINIB. [Concomitant]
     Active Substance: DASATINIB
     Indication: CHRONIC MYELOID LEUKAEMIA
     Dosage: 20 MILLIGRAM, ONCE A DAY
     Route: 065
  4. MOXIFLOXACIN. [Suspect]
     Active Substance: MOXIFLOXACIN
     Indication: PRODUCT USED FOR UNKNOWN INDICATION
     Dosage: UNK
     Route: 065
  5. DASATINIB. [Concomitant]
     Active Substance: DASATINIB
     Dosage: 25 MILLIGRAM, ONCE A DAY
     Route: 065
  6. IMATINIB. [Concomitant]
     Active Substance: IMATINIB MESYLATE
     Dosage: 100 MILLIGRAM, TWO TIMES A DAY
     Route: 065
  7. IMATINIB. [Concomitant]
     Active Substance: IMATINIB MESYLATE
     Indication: CHRONIC MYELOID LEUKAEMIA
     Dosage: 50 MILLIGRAM
     Route: 065

REACTIONS (18)
  - Anxiety [Not Recovered/Not Resolved]
  - Coordination abnormal [Not Recovered/Not Resolved]
  - Paraesthesia [Not Recovered/Not Resolved]
  - Cardiac disorder [Not Recovered/Not Resolved]
  - Hypoaesthesia [Not Recovered/Not Resolved]
  - Myalgia [Not Recovered/Not Resolved]
  - Photosensitivity reaction [Not Recovered/Not Resolved]
  - Temperature intolerance [Not Recovered/Not Resolved]
  - Arthralgia [Not Recovered/Not Resolved]
  - Erythema [Not Recovered/Not Resolved]
  - Rash [Not Recovered/Not Resolved]
  - Insomnia [Not Recovered/Not Resolved]
  - Restlessness [Not Recovered/Not Resolved]
  - Tendon pain [Not Recovered/Not Resolved]
  - Back pain [Not Recovered/Not Resolved]
  - Ligament sprain [Not Recovered/Not Resolved]
  - Proctalgia [Not Recovered/Not Resolved]
  - Weight decreased [Not Recovered/Not Resolved]
